FAERS Safety Report 9960590 (Version 1)
Quarter: 2014Q1

REPORT INFORMATION
  Report Type: Report from Study
  Country: US (occurrence: US)
  Receive Date: 20140305
  Receipt Date: 20140305
  Transmission Date: 20141002
  Serious: No
  Sender: FDA-Public Use
  Company Number: US-ABBVIE-13P-163-1109837-00

PATIENT
  Age: 24 Year
  Sex: Female

DRUGS (7)
  1. HUMIRA [Suspect]
     Indication: COLITIS ULCERATIVE
     Dates: start: 20130213
  2. MUCINEX D [Concomitant]
     Indication: HYPERSENSITIVITY
     Dosage: 1200/120 DAILY
  3. ZYRTEC [Concomitant]
     Indication: HYPERSENSITIVITY
  4. APRISO [Concomitant]
     Indication: COLITIS
  5. TOPROL [Concomitant]
     Indication: MITRAL VALVE PROLAPSE
  6. JOLIVETTE-28 [Concomitant]
     Indication: CONTRACEPTION
  7. ALLERGY SHOT [Concomitant]
     Indication: HYPERSENSITIVITY

REACTIONS (5)
  - Injection site swelling [Recovered/Resolved]
  - Injection site pain [Recovered/Resolved]
  - Injection site pain [Recovered/Resolved]
  - Injection site swelling [Recovered/Resolved]
  - Injection site pain [Recovering/Resolving]
